FAERS Safety Report 8515185-5 (Version None)
Quarter: 2012Q3

REPORT INFORMATION
  Report Type: 
  Country: None (occurrence: None)
  Receive Date: 20120717
  Receipt Date: 20120710
  Transmission Date: 20120928
  Serious: Yes (Hospitalization)
  Sender: FDA-Public Use
  Company Number: JP-GLAXOSMITHKLINE-B0802941A

PATIENT
  Sex: Female

DRUGS (5)
  1. CLONAZEPAM [Concomitant]
     Dosage: .5MG PER DAY
     Route: 048
     Dates: end: 20120508
  2. CHINESE MEDICINE [Concomitant]
     Dosage: 7.5MG PER DAY
     Route: 048
     Dates: end: 20120507
  3. NITRAZEPAM [Concomitant]
     Route: 048
     Dates: end: 20120508
  4. LAMICTAL [Suspect]
     Indication: BIPOLAR II DISORDER
     Dosage: 50MG PER DAY
     Route: 048
     Dates: start: 20120401, end: 20120508
  5. DOGMATYL [Concomitant]
     Dosage: 60MG PER DAY
     Route: 048
     Dates: end: 20120508

REACTIONS (9)
  - STEVENS-JOHNSON SYNDROME [None]
  - LIP EROSION [None]
  - INFECTION [None]
  - DRUG ERUPTION [None]
  - GENERALISED ERYTHEMA [None]
  - PYREXIA [None]
  - LIP SWELLING [None]
  - RASH [None]
  - DRUG RASH WITH EOSINOPHILIA AND SYSTEMIC SYMPTOMS [None]
